FAERS Safety Report 11057223 (Version 1)
Quarter: 2015Q2

REPORT INFORMATION
  Report Type: Spontaneous
  Country: TR (occurrence: TR)
  Receive Date: 20150422
  Receipt Date: 20150422
  Transmission Date: 20150821
  Serious: Yes (Life-Threatening, Hospitalization)
  Sender: FDA-Public Use
  Company Number: TR-MYLANLABS-2015M1013516

PATIENT

DRUGS (4)
  1. KETOPROFEN. [Interacting]
     Active Substance: KETOPROFEN
     Indication: PYREXIA
     Route: 065
  2. LITHIUM. [Interacting]
     Active Substance: LITHIUM
     Indication: BIPOLAR DISORDER
     Route: 065
  3. CEFPROZIL. [Suspect]
     Active Substance: CEFPROZIL
     Indication: PYREXIA
     Route: 065
  4. OLANZAPINE. [Concomitant]
     Active Substance: OLANZAPINE
     Indication: BIPOLAR DISORDER
     Route: 065

REACTIONS (4)
  - Toxicity to various agents [Recovering/Resolving]
  - Drug interaction [Recovering/Resolving]
  - Neuroleptic malignant syndrome [Recovering/Resolving]
  - Acute kidney injury [Recovering/Resolving]
